FAERS Safety Report 14583761 (Version 3)
Quarter: 2018Q2

REPORT INFORMATION
  Report Type: Spontaneous
  Country: US (occurrence: US)
  Receive Date: 20180228
  Receipt Date: 20180511
  Transmission Date: 20180711
  Serious: Yes (Hospitalization, Disabling, Other)
  Sender: FDA-Public Use
  Company Number: PHHY2018US030683

PATIENT
  Age: 59 Year
  Sex: Female
  Weight: 137.6 kg

DRUGS (14)
  1. VITAMIN D3 [Concomitant]
     Active Substance: CHOLECALCIFEROL
     Indication: MINERAL SUPPLEMENTATION
     Dosage: 1000 U, QD
     Route: 048
     Dates: start: 20170224
  2. IBUPROFEN. [Concomitant]
     Active Substance: IBUPROFEN
     Indication: MUSCULOSKELETAL PAIN
     Dosage: 200 MG, PRN
     Route: 048
     Dates: start: 20170315
  3. CARVEDILOL. [Concomitant]
     Active Substance: CARVEDILOL
     Indication: HYPERTENSION
     Dosage: 3.25 MG, BID  (3.25 MG, 2 IN 1 DAY)
     Route: 048
     Dates: start: 20170511
  4. HYDROCODONE [Concomitant]
     Active Substance: HYDROCODONE
     Indication: MUSCULOSKELETAL PAIN
     Dosage: 650 MG, PRN
     Route: 048
     Dates: start: 20170214
  5. MAGNESIUM [Concomitant]
     Active Substance: MAGNESIUM
     Indication: HYPOMAGNESAEMIA
     Dosage: 500 MG, QD
     Route: 048
     Dates: start: 20170413
  6. TOPOTECAN HYDROCHLORIDE. [Suspect]
     Active Substance: TOPOTECAN HYDROCHLORIDE
     Indication: SMALL CELL LUNG CANCER
     Dosage: 1.5 MG/M2, (DAY 1 TO 5 OF EACH 21 DAY CYCLE) UNK
     Route: 042
     Dates: start: 20180105, end: 20180109
  7. SERTRALINE [Concomitant]
     Active Substance: SERTRALINE HYDROCHLORIDE
     Indication: DEPRESSION
     Dosage: 50 MG, QD
     Route: 048
     Dates: start: 20121129
  8. CETRIZINE [Concomitant]
     Active Substance: CETIRIZINE HYDROCHLORIDE
     Indication: HYPERSENSITIVITY
     Dosage: 5 MG, QD
     Route: 048
     Dates: start: 20170331
  9. IPRATROPIUM [Concomitant]
     Active Substance: IPRATROPIUM
     Indication: WHEEZING
     Dosage: 3 MG, PRN
     Route: 055
     Dates: start: 20170216
  10. MULTIVITAMINS [Concomitant]
     Active Substance: VITAMINS
     Indication: SUPPLEMENTATION THERAPY
     Dosage: 1 DF, QD
     Route: 048
     Dates: start: 20170224
  11. AMLODIPINE [Concomitant]
     Active Substance: AMLODIPINE BESYLATE
     Indication: HYPERTENSION
     Dosage: 10 MG, QD
     Route: 048
     Dates: start: 20170511
  12. ONDANSETRON [Concomitant]
     Active Substance: ONDANSETRON
     Indication: NAUSEA
     Dosage: 4 MG, PRN
     Route: 048
     Dates: start: 20170324
  13. ROVALPITUZUMAB TESIRINE [Suspect]
     Active Substance: ROVALPITUZUMAB TESIRINE
     Indication: SMALL CELL LUNG CANCER
     Route: 042
  14. ALBUTEROL. [Concomitant]
     Active Substance: ALBUTEROL
     Indication: COUGH
     Dosage: 90 UG (MCG) UNK, PRN
     Route: 055
     Dates: start: 20170212

REACTIONS (12)
  - Neutropenia [Recovered/Resolved]
  - Pleural effusion [Unknown]
  - Dyspnoea [Unknown]
  - Febrile neutropenia [Unknown]
  - Dermatitis [Not Recovered/Not Resolved]
  - Hepatic steatosis [Unknown]
  - Pruritus [Recovered/Resolved]
  - Hepatomegaly [Unknown]
  - Papule [Recovered/Resolved]
  - Thrombocytopenia [Not Recovered/Not Resolved]
  - Sinus tachycardia [Unknown]
  - Pyrexia [Unknown]

NARRATIVE: CASE EVENT DATE: 20180109
